FAERS Safety Report 9277923 (Version 1)
Quarter: 2012Q4

REPORT INFORMATION
  Report Type: Spontaneous
  Country: US (occurrence: None)
  Receive Date: 20121210
  Receipt Date: 20121210
  Transmission Date: 20130627
  Serious: Yes (Hospitalization, Other)
  Sender: FDA-Public Use
  Company Number: AMAG201203086

PATIENT
  Age: 89 Year
  Sex: Female
  Weight: 45.8 kg

DRUGS (9)
  1. FERAHEME (FERUMOXYTOL) INJECTION, 510MG [Suspect]
     Indication: NEPHROGENIC ANEMIA
     Dosage: single,(240 mg), push
     Route: 042
     Dates: start: 20120820, end: 20120820
  2. AMLODIPINE (AMLODIPINE MALEATE) [Concomitant]
  3. SINGULAIR (MONTELUKAST SODIUM) [Concomitant]
  4. SPIRIVA (TIOTROPIUM BROMIDE) [Concomitant]
  5. ADVAIR (FLUTICASONE PROPIONATE, SALMETEROL XINAFOATE) [Concomitant]
  6. NORCO (HYDROCODONE BITARTRATE, PARACETAMOL) [Concomitant]
  7. VALIUM (DIAZEPAM) [Concomitant]
  8. NEXIUM (ESOMEPRAZOLE SODIUM) [Concomitant]
  9. HYDROCHLOROTHIAZIDE (HYDROCHLOROTHIAZIDE) [Concomitant]

REACTIONS (29)
  - Hypotension [None]
  - Loss of consciousness [None]
  - Unresponsive to stimuli [None]
  - Syncope [None]
  - Dehydration [None]
  - Renal failure acute [None]
  - Escherichia urinary tract infection [None]
  - Dizziness [None]
  - Tachycardia [None]
  - Dyspnoea [None]
  - Asthenia [None]
  - Tremor [None]
  - Anxiety [None]
  - Nausea [None]
  - Leukocytosis [None]
  - Infusion related reaction [None]
  - Cardiac murmur [None]
  - Electrocardiogram T wave abnormal [None]
  - QRS axis abnormal [None]
  - Anaphylactic reaction [None]
  - Presyncope [None]
  - Hypovolaemia [None]
  - Platelet count decreased [None]
  - Blood chloride increased [None]
  - Carotid artery stenosis [None]
  - Tricuspid valve incompetence [None]
  - Aortic valve incompetence [None]
  - Mitral valve incompetence [None]
  - Blood calcium decreased [None]
